FAERS Safety Report 9768973 (Version 2)
Quarter: 2013Q4

REPORT INFORMATION
  Report Type: Spontaneous
  Country: US (occurrence: None)
  Receive Date: 20130828
  Receipt Date: 20131024
  Transmission Date: 20140711
  Serious: Yes (Hospitalization)
  Sender: FDA-Public Use
  Company Number: OTH-SPN-2013005

PATIENT
  Age: 3 Year
  Sex: Male

DRUGS (1)
  1. CARBAGLU (CARGLUMIC ACID) [Suspect]
     Indication: HYPERAMMONAEMIA
     Dosage: 600 MG, TID, 1 EVERY DAY, ORAL
     Route: 048
     Dates: start: 20110324

REACTIONS (5)
  - Hospitalisation [None]
  - Vomiting [None]
  - Cough [None]
  - Pancreatitis [None]
  - Sepsis [None]
